FAERS Safety Report 23196992 (Version 3)
Quarter: 2025Q3

REPORT INFORMATION
  Report Type: Spontaneous
  Country: EU (occurrence: EU)
  Receive Date: 20231117
  Receipt Date: 20250820
  Transmission Date: 20251021
  Serious: Yes (Other)
  Sender: MYLAN
  Company Number: EU-SA-2023SA330730

PATIENT
  Age: 11 Year
  Sex: Female

DRUGS (24)
  1. TACROLIMUS [Suspect]
     Active Substance: TACROLIMUS
     Indication: Prophylaxis against graft versus host disease
  2. TACROLIMUS [Suspect]
     Active Substance: TACROLIMUS
     Route: 065
  3. TACROLIMUS [Suspect]
     Active Substance: TACROLIMUS
     Route: 065
  4. TACROLIMUS [Suspect]
     Active Substance: TACROLIMUS
  5. MYCOPHENOLATE MOFETIL [Suspect]
     Active Substance: MYCOPHENOLATE MOFETIL
     Indication: Prophylaxis against graft versus host disease
  6. MYCOPHENOLATE MOFETIL [Suspect]
     Active Substance: MYCOPHENOLATE MOFETIL
     Route: 065
  7. MYCOPHENOLATE MOFETIL [Suspect]
     Active Substance: MYCOPHENOLATE MOFETIL
     Route: 065
  8. MYCOPHENOLATE MOFETIL [Suspect]
     Active Substance: MYCOPHENOLATE MOFETIL
  9. FLUDARABINE [Suspect]
     Active Substance: FLUDARABINE PHOSPHATE
     Indication: Bone marrow conditioning regimen
  10. FLUDARABINE [Suspect]
     Active Substance: FLUDARABINE PHOSPHATE
     Indication: Allogenic stem cell transplantation
     Route: 065
  11. FLUDARABINE [Suspect]
     Active Substance: FLUDARABINE PHOSPHATE
     Route: 065
  12. FLUDARABINE [Suspect]
     Active Substance: FLUDARABINE PHOSPHATE
  13. CORTICOSTEROID NOS [Suspect]
     Active Substance: CORTICOSTEROID NOS
     Indication: Acute graft versus host disease
  14. CORTICOSTEROID NOS [Suspect]
     Active Substance: CORTICOSTEROID NOS
     Route: 065
  15. CORTICOSTEROID NOS [Suspect]
     Active Substance: CORTICOSTEROID NOS
     Route: 065
  16. CORTICOSTEROID NOS [Suspect]
     Active Substance: CORTICOSTEROID NOS
  17. THIOTEPA [Suspect]
     Active Substance: THIOTEPA
     Indication: Bone marrow conditioning regimen
  18. THIOTEPA [Suspect]
     Active Substance: THIOTEPA
     Indication: Allogenic stem cell transplantation
     Route: 065
  19. THIOTEPA [Suspect]
     Active Substance: THIOTEPA
     Route: 065
  20. THIOTEPA [Suspect]
     Active Substance: THIOTEPA
  21. TREOSULFAN [Suspect]
     Active Substance: TREOSULFAN
     Indication: Bone marrow conditioning regimen
  22. TREOSULFAN [Suspect]
     Active Substance: TREOSULFAN
     Indication: Allogenic stem cell transplantation
     Route: 065
  23. TREOSULFAN [Suspect]
     Active Substance: TREOSULFAN
     Route: 065
  24. TREOSULFAN [Suspect]
     Active Substance: TREOSULFAN

REACTIONS (4)
  - Cytomegalovirus infection [Unknown]
  - Cytomegalovirus infection reactivation [Unknown]
  - Off label use [Unknown]
  - Intentional product misuse [Unknown]
